FAERS Safety Report 20397220 (Version 2)
Quarter: 2022Q1

REPORT INFORMATION
  Report Type: Spontaneous
  Country: US (occurrence: US)
  Receive Date: 20220131
  Receipt Date: 20220201
  Transmission Date: 20220423
  Serious: No
  Sender: FDA-Public Use
  Company Number: US-ABBVIE-21K-163-3918904-00

PATIENT
  Age: 15 Year
  Sex: Female
  Weight: 41.768 kg

DRUGS (4)
  1. HUMIRA [Suspect]
     Active Substance: ADALIMUMAB
     Indication: Juvenile idiopathic arthritis
     Route: 058
     Dates: start: 20191104
  2. METHOTREXATE [Concomitant]
     Active Substance: METHOTREXATE
     Indication: Juvenile idiopathic arthritis
  3. MELOXICAM [Concomitant]
     Active Substance: MELOXICAM
     Indication: Juvenile idiopathic arthritis
  4. LEUCOVORIN [Concomitant]
     Active Substance: LEUCOVORIN
     Indication: Juvenile idiopathic arthritis

REACTIONS (2)
  - Chest pain [Recovered/Resolved]
  - Hypertension [Unknown]

NARRATIVE: CASE EVENT DATE: 20210301
